FAERS Safety Report 22098640 (Version 3)
Quarter: 2023Q1

REPORT INFORMATION
  Report Type: Spontaneous
  Country: JP (occurrence: JP)
  Receive Date: 20230315
  Receipt Date: 20230329
  Transmission Date: 20230418
  Serious: Yes (Hospitalization)
  Sender: FDA-Public Use
  Company Number: JP-Eisai-202215500_LEN-EC_P_1

PATIENT
  Age: 68 Year
  Sex: Female

DRUGS (3)
  1. LENVIMA [Suspect]
     Active Substance: LENVATINIB
     Indication: Endometrial cancer recurrent
     Route: 048
     Dates: start: 20230203, end: 20230228
  2. KEYTRUDA [Suspect]
     Active Substance: PEMBROLIZUMAB
     Indication: Endometrial cancer recurrent
     Route: 041
     Dates: start: 20230203, end: 20230224
  3. AMLODIPINE [Concomitant]
     Active Substance: AMLODIPINE BESYLATE
     Indication: Hypertension
     Route: 065

REACTIONS (4)
  - Gastrointestinal perforation [Not Recovered/Not Resolved]
  - Rectal haemorrhage [Unknown]
  - Hypertension [Recovered/Resolved]
  - Hypothyroidism [Unknown]

NARRATIVE: CASE EVENT DATE: 20230201
